FAERS Safety Report 5724620-7 (Version None)
Quarter: 2008Q2

REPORT INFORMATION
  Report Type: 
  Country: None (occurrence: None)
  Receive Date: 20080430
  Receipt Date: 20080430
  Transmission Date: 20081010
  Serious: Yes (Other)
  Sender: FDA-Public Use
  Company Number: None

PATIENT
  Age: 28 Year
  Sex: Female
  Weight: 53 kg

DRUGS (5)
  1. ISOVUE-300 [Suspect]
     Indication: SCAN WITH CONTRAST
     Dosage: 68 ML IV SINGLE USE
     Route: 042
  2. HYDROCORTISONE [Concomitant]
  3. PREDNISONE TAB [Concomitant]
  4. IBUPROFEN [Concomitant]
  5. CIPRO [Concomitant]

REACTIONS (3)
  - BRONCHOSPASM [None]
  - CONTRAST MEDIA REACTION [None]
  - SNEEZING [None]
